FAERS Safety Report 17861313 (Version 1)
Quarter: 2020Q2

REPORT INFORMATION
  Report Type: Spontaneous
  Country: US (occurrence: US)
  Receive Date: 20200604
  Receipt Date: 20200604
  Transmission Date: 20200714
  Serious: No
  Sender: FDA-Public Use
  Company Number: US-HARMONY BIOSCIENCES-2020HMY00152

PATIENT
  Age: 49 Year
  Sex: Male
  Weight: 115.65 kg

DRUGS (12)
  1. PANTOPRAZOLE [Concomitant]
     Active Substance: PANTOPRAZOLE
     Dosage: 40 MG, 1X/DAY
  2. MEDROL [Concomitant]
     Active Substance: METHYLPREDNISOLONE
     Dosage: UNK
  3. ALLOPURINOL. [Concomitant]
     Active Substance: ALLOPURINOL
     Dosage: 300 MG, 1X/DAY
  4. WAKIX [Suspect]
     Active Substance: PITOLISANT HYDROCHLORIDE
     Indication: NARCOLEPSY
     Dosage: UNK
     Route: 048
     Dates: start: 20190816
  5. WAKIX [Suspect]
     Active Substance: PITOLISANT HYDROCHLORIDE
     Indication: SOMNOLENCE
     Dosage: 8.9 MG, 1X/DAY FOR 7 DAYS
     Route: 048
     Dates: start: 20200211, end: 20200217
  6. PAROXETINE. [Concomitant]
     Active Substance: PAROXETINE
     Dosage: 20 MG, 1X/DAY
  7. WAKIX [Suspect]
     Active Substance: PITOLISANT HYDROCHLORIDE
     Indication: NARCOLEPSY
     Dosage: 17.8 MG, 1X/DAY
     Route: 048
     Dates: start: 20200218, end: 20200331
  8. WAKIX [Suspect]
     Active Substance: PITOLISANT HYDROCHLORIDE
     Indication: SOMNOLENCE
     Dosage: 35.6 MG, 1X/DAY
     Route: 048
     Dates: start: 20200401
  9. IBUPROFEN. [Concomitant]
     Active Substance: IBUPROFEN
  10. LEVOTHYROXINE. [Concomitant]
     Active Substance: LEVOTHYROXINE
     Dosage: 75 ?G, 1X/DAY
  11. TYLENOL [Concomitant]
     Active Substance: ACETAMINOPHEN
  12. MELOXICAM. [Concomitant]
     Active Substance: MELOXICAM
     Dosage: 15 MG, EVERY OTHER DAY

REACTIONS (12)
  - Vision blurred [Not Recovered/Not Resolved]
  - Cold sweat [Recovered/Resolved]
  - Pallor [Recovered/Resolved]
  - Asthenopia [Not Recovered/Not Resolved]
  - Mental fatigue [Not Recovered/Not Resolved]
  - Hyperhidrosis [Recovered/Resolved]
  - Drug ineffective [Not Recovered/Not Resolved]
  - Cataplexy [Not Recovered/Not Resolved]
  - Asthenia [Not Recovered/Not Resolved]
  - Dizziness [Recovered/Resolved]
  - Headache [Recovered/Resolved]
  - Nausea [Recovered/Resolved]

NARRATIVE: CASE EVENT DATE: 202002
